FAERS Safety Report 6867762-5 (Version None)
Quarter: 2010Q3

REPORT INFORMATION
  Report Type: 
  Country: None (occurrence: None)
  Receive Date: 20100722
  Receipt Date: 20100720
  Transmission Date: 20110219
  Serious: No
  Sender: FDA-Public Use
  Company Number: JP-B.I. PHARMACEUTICALS,INC./RIDGEFIELD-2010-BP-07610YA

PATIENT
  Sex: Male

DRUGS (3)
  1. HARNAL (TAMSULOSIN) ORODISPERSABLE CR [Suspect]
     Route: 048
  2. CLARITHROMYCIN [Concomitant]
  3. GOSHAJINKIGAN (HERBAL EXTRACT NOS) [Concomitant]

REACTIONS (3)
  - BONE MARROW FAILURE [None]
  - NO ADVERSE EVENT [None]
  - VITAMIN B12 DEFICIENCY [None]
